FAERS Safety Report 4360972-0 (Version None)
Quarter: 2004Q2

REPORT INFORMATION
  Report Type: 
  Country: None (occurrence: None)
  Receive Date: 20040517
  Receipt Date: 20040429
  Transmission Date: 20050107
  Serious: Yes (Hospitalization)
  Sender: FDA-Public Use
  Company Number: DSA_24342_2004

PATIENT
  Age: 78 Year
  Sex: Female

DRUGS (11)
  1. TEMESTA [Suspect]
     Indication: INSOMNIA
     Dosage: 5 MG Q DAY PO
     Route: 048
     Dates: start: 20040218, end: 20040218
  2. MEPRONIZINE [Suspect]
     Dosage: 5 MG Q DAY PO
     Route: 048
     Dates: start: 20040218, end: 20040218
  3. POLARAMINE [Suspect]
     Dosage: 2 TAB Q DAY PO
     Route: 048
     Dates: start: 20040218, end: 20040218
  4. AVLOCARDYL [Concomitant]
  5. ATHYMIL [Concomitant]
  6. DEROXAT [Concomitant]
  7. LEVOTHYROXINE SODIUM [Concomitant]
  8. ASPIRIN [Concomitant]
  9. ATARAX [Concomitant]
  10. BRONCHODUAL [Concomitant]
  11. COLCHICINE [Concomitant]

REACTIONS (9)
  - ACCIDENTAL OVERDOSE [None]
  - BRADYCARDIA [None]
  - CREATININE RENAL CLEARANCE DECREASED [None]
  - FALL [None]
  - HEAD INJURY [None]
  - LOSS OF CONSCIOUSNESS [None]
  - PSYCHOMOTOR SKILLS IMPAIRED [None]
  - RETROGRADE AMNESIA [None]
  - SLEEP DISORDER [None]
